FAERS Safety Report 12423454 (Version 1)
Quarter: 2016Q2

REPORT INFORMATION
  Report Type: Spontaneous
  Country: US (occurrence: None)
  Receive Date: 20160531
  Receipt Date: 20160531
  Transmission Date: 20160815
  Serious: Yes (Other)
  Sender: FDA-Public Use
  Company Number: None

PATIENT
  Age: 69 Year
  Sex: Female
  Weight: 59.88 kg

DRUGS (11)
  1. CIPRO [Suspect]
     Active Substance: CIPROFLOXACIN HYDROCHLORIDE
     Indication: SEPSIS
     Route: 048
     Dates: start: 20160404, end: 20160513
  2. IDODERM [Concomitant]
  3. SINGULAIR [Concomitant]
     Active Substance: MONTELUKAST SODIUM
  4. PARAMECIN [Concomitant]
  5. ALBUTEROL. [Concomitant]
     Active Substance: ALBUTEROL
  6. LINZESS [Concomitant]
     Active Substance: LINACLOTIDE
  7. ASPIRIN. [Concomitant]
     Active Substance: ASPIRIN
  8. D [Concomitant]
  9. CIPRO [Suspect]
     Active Substance: CIPROFLOXACIN HYDROCHLORIDE
     Indication: LIVER DISORDER
     Route: 048
     Dates: start: 20160404, end: 20160513
  10. FLAGYL [Suspect]
     Active Substance: METRONIDAZOLE\METRONIDAZOLE HYDROCHLORIDE
  11. VITAMIN B [Concomitant]
     Active Substance: VITAMIN B

REACTIONS (3)
  - Hypoaesthesia [None]
  - Drug ineffective [None]
  - Pain in extremity [None]

NARRATIVE: CASE EVENT DATE: 20160515
